FAERS Safety Report 6974544-2 (Version None)
Quarter: 2010Q3

REPORT INFORMATION
  Report Type: 
  Country: None (occurrence: None)
  Receive Date: 20100909
  Receipt Date: 20100909
  Transmission Date: 20110219
  Serious: Yes (Hospitalization)
  Sender: FDA-Public Use
  Company Number: None

PATIENT
  Age: 72 Year
  Sex: Female
  Weight: 74.8435 kg

DRUGS (1)
  1. CITALOPRAM HYDROBROMIDE [Suspect]
     Dosage: 1 DAILY
     Dates: start: 20100610, end: 20100807

REACTIONS (3)
  - BACK PAIN [None]
  - DEHYDRATION [None]
  - PRODUCT SUBSTITUTION ISSUE [None]
